FAERS Safety Report 6833617-5 (Version None)
Quarter: 2010Q3

REPORT INFORMATION
  Report Type: 
  Country: None (occurrence: None)
  Receive Date: 20100712
  Receipt Date: 20070328
  Transmission Date: 20110219
  Serious: No
  Sender: FDA-Public Use
  Company Number: US-PFIZER INC-2007027029

PATIENT
  Sex: Female
  Weight: 68.04 kg

DRUGS (6)
  1. CHANTIX [Suspect]
     Indication: SMOKING CESSATION THERAPY
     Dates: start: 20070301, end: 20070327
  2. AMBIEN [Interacting]
     Indication: SLEEP DISORDER
     Dates: end: 20070301
  3. EFFEXOR [Concomitant]
  4. ZOCOR [Concomitant]
  5. ALLEGRA [Concomitant]
  6. CALCIUM [Concomitant]

REACTIONS (11)
  - ACTIVITIES OF DAILY LIVING IMPAIRED [None]
  - CRYING [None]
  - DRUG INTERACTION [None]
  - HEART RATE INCREASED [None]
  - HOMICIDAL IDEATION [None]
  - INSOMNIA [None]
  - NIGHTMARE [None]
  - PARAESTHESIA [None]
  - PARAESTHESIA ORAL [None]
  - THINKING ABNORMAL [None]
  - TREMOR [None]
